FAERS Safety Report 5446900-5 (Version None)
Quarter: 2007Q3

REPORT INFORMATION
  Report Type: 
  Country: None (occurrence: None)
  Receive Date: 20070802
  Receipt Date: 20061106
  Transmission Date: 20080115
  Serious: Yes (Death, Hospitalization)
  Sender: FDA-Public Use
  Company Number: US-JNJFOC-20061102048

PATIENT
  Age: 36 Month
  Sex: Male

DRUGS (1)
  1. CHILDREN'S MOTRIN [Suspect]
     Indication: ARTHROPOD STING
     Dosage: ORAL
     Route: 048
     Dates: start: 20040928

REACTIONS (1)
  - STEVENS-JOHNSON SYNDROME [None]
